FAERS Safety Report 23013811 (Version 1)
Quarter: 2023Q4

REPORT INFORMATION
  Report Type: Spontaneous
  Country: KW (occurrence: KW)
  Receive Date: 20231001
  Receipt Date: 20231001
  Transmission Date: 20240110
  Serious: Yes (Other)
  Sender: FDA-Public Use
  Company Number: KW-STRIDES ARCOLAB LIMITED-2023SP014914

PATIENT
  Age: 15 Year
  Sex: Male
  Weight: 51 kg

DRUGS (4)
  1. ATOMOXETINE [Interacting]
     Active Substance: ATOMOXETINE
     Indication: Attention deficit hyperactivity disorder
     Dosage: 25 MILLIGRAM, PER DAY
     Route: 065
  2. ATOMOXETINE [Interacting]
     Active Substance: ATOMOXETINE
     Indication: Generalised anxiety disorder
     Dosage: 65 MILLIGRAM, PER DAY
     Route: 065
  3. DULOXETINE [Interacting]
     Active Substance: DULOXETINE
     Indication: Attention deficit hyperactivity disorder
     Dosage: 30 MILLIGRAM, PER DAY
     Route: 065
  4. DULOXETINE [Interacting]
     Active Substance: DULOXETINE
     Indication: Generalised anxiety disorder
     Dosage: 30 MILLIGRAM, BID
     Route: 065

REACTIONS (3)
  - Stress cardiomyopathy [Unknown]
  - Drug interaction [Unknown]
  - Off label use [Unknown]
